FAERS Safety Report 6228122-3 (Version None)
Quarter: 2009Q2

REPORT INFORMATION
  Report Type: 
  Country: None (occurrence: None)
  Receive Date: 20090610
  Receipt Date: 20090610
  Transmission Date: 20091009
  Serious: Yes (Disabling)
  Sender: FDA-Public Use
  Company Number: None

PATIENT
  Age: 39 Year
  Sex: Female
  Weight: 97.5234 kg

DRUGS (1)
  1. THERAFLU [Suspect]
     Indication: INFLUENZA LIKE ILLNESS
     Dosage: 1 PACKAGE 6 HRS PO ONE DOSE
     Route: 048
     Dates: start: 20060606, end: 20060606

REACTIONS (2)
  - PHARYNGEAL OEDEMA [None]
  - RESPIRATORY DISORDER [None]
